FAERS Safety Report 4562532-5 (Version None)
Quarter: 2005Q1

REPORT INFORMATION
  Report Type: 
  Country: None (occurrence: None)
  Receive Date: 20050124
  Receipt Date: 20050119
  Transmission Date: 20050727
  Serious: Yes (Death, Hospitalization)
  Sender: FDA-Public Use
  Company Number: TPA2005A00080

PATIENT
  Age: 80 Year
  Sex: Female

DRUGS (7)
  1. ACTOS [Suspect]
     Indication: DIABETES MELLITUS NON-INSULIN-DEPENDENT
     Dosage: 15 MG, 1 IN 1 D, PER ORAL
     Route: 048
     Dates: start: 20041029, end: 20050115
  2. DIGOXIN [Concomitant]
  3. TOLAZAMIDE (TOLAZAMIDE) [Concomitant]
  4. HYDROCHLOROTHIAZIDE [Concomitant]
  5. LISINOPRIL [Concomitant]
  6. WARFARIN SODIUM [Concomitant]
  7. FOSAMAX [Concomitant]

REACTIONS (10)
  - ANOREXIA [None]
  - ANURIA [None]
  - CARDIOGENIC SHOCK [None]
  - DYSPNOEA [None]
  - FATIGUE [None]
  - HEPATIC FAILURE [None]
  - INTERNATIONAL NORMALISED RATIO INCREASED [None]
  - MYOCARDIAL INFARCTION [None]
  - PROTHROMBIN TIME PROLONGED [None]
  - RENAL FAILURE [None]
